FAERS Safety Report 19665000 (Version 3)
Quarter: 2021Q3

REPORT INFORMATION
  Report Type: Spontaneous
  Country: US (occurrence: US)
  Receive Date: 20210806
  Receipt Date: 20210920
  Transmission Date: 20211014
  Serious: No
  Sender: FDA-Public Use
  Company Number: US-ASTRAZENECA-2021A619940

PATIENT
  Age: 25709 Day
  Sex: Male

DRUGS (1)
  1. BYDUREON BCISE [Suspect]
     Active Substance: EXENATIDE
     Indication: BLOOD GLUCOSE ABNORMAL
     Route: 058

REACTIONS (8)
  - Incorrect dose administered by device [Unknown]
  - Device issue [Unknown]
  - Injection site swelling [Unknown]
  - Injection site extravasation [Unknown]
  - Injection site haemorrhage [Unknown]
  - Injection site indentation [Unknown]
  - Drug ineffective [Unknown]
  - Injection site pain [Unknown]

NARRATIVE: CASE EVENT DATE: 20210712
